FAERS Safety Report 7889891-X (Version None)
Quarter: 2011Q4

REPORT INFORMATION
  Report Type: 
  Country: None (occurrence: None)
  Receive Date: 20111103
  Receipt Date: 20111026
  Transmission Date: 20120403
  Serious: Yes (Hospitalization)
  Sender: FDA-Public Use
  Company Number: IT-GLAXOSMITHKLINE-B0759353A

PATIENT
  Sex: Male

DRUGS (2)
  1. FLUTICASONE PROPIONATE/SALMETEROL [Suspect]
     Indication: ASTHMA
     Dosage: 2U PER DAY
     Route: 055
     Dates: start: 20110302, end: 20110714
  2. XOLAIR [Suspect]
     Indication: ASTHMA
     Dosage: 300MG MONTHLY
     Route: 058
     Dates: start: 20110203, end: 20110714

REACTIONS (1)
  - ACUTE MYOCARDIAL INFARCTION [None]
